FAERS Safety Report 24943846 (Version 1)
Quarter: 2025Q1

REPORT INFORMATION
  Report Type: Spontaneous
  Country: ES (occurrence: ES)
  Receive Date: 20250207
  Receipt Date: 20250207
  Transmission Date: 20250409
  Serious: Yes (Other)
  Sender: TRAVERE THERAPEUTICS
  Company Number: ES-BEH-2025194243

PATIENT
  Age: 45 Year
  Sex: Male

DRUGS (5)
  1. FILSPARI [Suspect]
     Active Substance: SPARSENTAN
     Indication: Product used for unknown indication
     Route: 048
     Dates: start: 20211001, end: 202411
  2. CYCLOSPORINE [Concomitant]
     Active Substance: CYCLOSPORINE
     Indication: Chronic kidney disease
  3. CYCLOSPORINE [Concomitant]
     Active Substance: CYCLOSPORINE
     Indication: Nephrotic syndrome
  4. MYCOPHENOLATE MOFETIL [Concomitant]
     Active Substance: MYCOPHENOLATE MOFETIL
     Indication: Chronic kidney disease
  5. MYCOPHENOLATE MOFETIL [Concomitant]
     Active Substance: MYCOPHENOLATE MOFETIL
     Indication: Nephrotic syndrome

REACTIONS (6)
  - Rebound effect [Unknown]
  - Nephrotic syndrome [Unknown]
  - Renal impairment [Unknown]
  - Chronic kidney disease [Unknown]
  - Focal segmental glomerulosclerosis [Unknown]
  - Proteinuria [Unknown]

NARRATIVE: CASE EVENT DATE: 20250101
